FAERS Safety Report 5706659-0 (Version None)
Quarter: 2008Q2

REPORT INFORMATION
  Report Type: 
  Country: None (occurrence: None)
  Receive Date: 20080414
  Receipt Date: 20080414
  Transmission Date: 20081010
  Serious: Yes (Life-Threatening)
  Sender: FDA-Public Use
  Company Number: None

PATIENT
  Age: 75 Year
  Sex: Male
  Weight: 105 kg

DRUGS (1)
  1. CETACAINE SPRAY [Suspect]
     Dosage: 2 SPRAYS OROPHARINGE
     Route: 049

REACTIONS (3)
  - DYSPNOEA [None]
  - HEART RATE INCREASED [None]
  - METHAEMOGLOBINAEMIA [None]
